FAERS Safety Report 11047068 (Version 1)
Quarter: 2015Q2

REPORT INFORMATION
  Report Type: Spontaneous
  Country: US (occurrence: US)
  Receive Date: 20150420
  Receipt Date: 20150420
  Transmission Date: 20150821
  Serious: No
  Sender: FDA-Public Use
  Company Number: US-LEO PHARMA-232805

PATIENT
  Sex: Female

DRUGS (1)
  1. PICATO [Suspect]
     Active Substance: INGENOL MEBUTATE
     Indication: ACTINIC KERATOSIS
     Route: 061
     Dates: start: 20150215, end: 20150217

REACTIONS (3)
  - Application site scab [Recovered/Resolved]
  - Application site erythema [Recovering/Resolving]
  - Application site swelling [Recovered/Resolved]

NARRATIVE: CASE EVENT DATE: 20150215
